FAERS Safety Report 7588213-1 (Version None)
Quarter: 2011Q3

REPORT INFORMATION
  Report Type: 
  Country: None (occurrence: None)
  Receive Date: 20110705
  Receipt Date: 20110616
  Transmission Date: 20111222
  Serious: Yes (Hospitalization, Other)
  Sender: FDA-Public Use
  Company Number: US-BAYER-201032363NA

PATIENT
  Age: 39 Year
  Sex: Female
  Weight: 72.562 kg

DRUGS (16)
  1. HYDROCODONE BITARTRATE AND ACETAMINOPHEN [Concomitant]
     Dosage: 5 MG, UNK
     Route: 048
  2. AZITHROMYCIN [Concomitant]
     Dosage: 250 MG, UNK
     Route: 048
  3. YAZ [Suspect]
     Indication: CONTRACEPTION
     Route: 048
     Dates: start: 20010101
  4. SPIRONOLACTONE [Concomitant]
     Dosage: 25 MG, UNK
     Route: 048
  5. TUSSIONEX [Concomitant]
     Dosage: UNK
     Route: 048
  6. NEXIUM [Concomitant]
     Dosage: 20 MG, UNK
     Route: 048
  7. YASMIN [Suspect]
     Indication: CONTRACEPTION
     Route: 048
     Dates: start: 20010101
  8. SULFAMETHOXAZOLE AND TRIMETHOPRIM [Concomitant]
     Route: 048
  9. CIPROFLOXACIN HYDROCHLORIDE [Concomitant]
     Dosage: 500 MG, UNK
     Route: 048
  10. HYDROCODONE BITARTRATE AND ACETAMINOPHEN [Concomitant]
     Dosage: 7.5 MG, UNK
  11. ASMANEX TWISTHALER [Concomitant]
     Dosage: UNK UNK, QD
     Route: 045
  12. IBUPROFEN [Concomitant]
     Dosage: 800 MG, TID
     Route: 048
  13. ACYCLOVIR ALPHARMA [ACICLOVIR SODIUM] [Concomitant]
     Dosage: 800 MG, UNK
     Route: 048
  14. AZITHROMYCIN [Concomitant]
     Dosage: 500 MG, UNK
     Route: 048
  15. XOPENEX [Concomitant]
     Dosage: UNK UNK, PRN
     Route: 045
  16. BENZONATATE [Concomitant]
     Dosage: 100 MG, UNK
     Route: 048

REACTIONS (4)
  - CHOLELITHIASIS [None]
  - PAIN [None]
  - GALLBLADDER DISORDER [None]
  - CHOLECYSTITIS CHRONIC [None]
